FAERS Safety Report 15892473 (Version 4)
Quarter: 2019Q2

REPORT INFORMATION
  Report Type: Spontaneous
  Country: GB (occurrence: GB)
  Receive Date: 20190130
  Receipt Date: 20190516
  Transmission Date: 20190711
  Serious: Yes (Hospitalization, Other)
  Sender: FDA-Public Use
  Company Number: GB-MYLANLABS-2019M1008356

PATIENT
  Age: 22 Year
  Sex: Female

DRUGS (15)
  1. TACROLIMUS. [Suspect]
     Active Substance: TACROLIMUS
     Indication: IMMUNOSUPPRESSION
     Dosage: UNK
     Route: 065
  2. AZATHIOPRINE. [Suspect]
     Active Substance: AZATHIOPRINE
     Indication: LIVER TRANSPLANT
     Dosage: POST LIVER TRANSPLANTATION
     Route: 065
  3. PREDNISOLONE. [Suspect]
     Active Substance: PREDNISOLONE
     Dosage: 40 MILLIGRAM, QD
     Route: 065
  4. PREDNISOLONE. [Suspect]
     Active Substance: PREDNISOLONE
     Dosage: 1 DOSAGE FORM (UNK, ONCE DAILY (TAPERING DOSE))
     Route: 065
  5. AZATHIOPRINE. [Suspect]
     Active Substance: AZATHIOPRINE
     Indication: IMMUNOSUPPRESSION
     Dosage: UNK, LOWER DOSE
     Route: 065
  6. PREDNISOLONE. [Suspect]
     Active Substance: PREDNISOLONE
     Indication: IMMUNOSUPPRESSION
     Dosage: 20 MG, QD (DOSE INCREASED   )
     Route: 065
  7. MESALAZINE [Suspect]
     Active Substance: MESALAMINE
     Dosage: UNK (DOSE INCREASED)
  8. MESALAZINE [Suspect]
     Active Substance: MESALAMINE
     Dosage: UNK
     Route: 065
  9. AZATHIOPRINE. [Suspect]
     Active Substance: AZATHIOPRINE
     Dosage: UNK
  10. MESALAZINE [Suspect]
     Active Substance: MESALAMINE
     Dosage: 800 MILLIGRAM, QD(800 MG, BID)
     Route: 065
  11. TACROLIMUS. [Suspect]
     Active Substance: TACROLIMUS
     Indication: LIVER TRANSPLANT
  12. MESALAZINE [Suspect]
     Active Substance: MESALAMINE
     Indication: COLITIS
     Dosage: 2.4 G, QD (2.4 G, BID)
     Route: 065
  13. MESALAZINE [Suspect]
     Active Substance: MESALAMINE
     Indication: CHOLANGITIS SCLEROSING
     Dosage: 1600 MILLIGRAM, 800 MG, BID
  14. MESALAZINE [Suspect]
     Active Substance: MESALAMINE
     Dosage: 4.8 GRAM, QD, 2.4 G, BID
     Route: 065
  15. PREDNISOLONE. [Suspect]
     Active Substance: PREDNISOLONE
     Indication: LIVER TRANSPLANT
     Dosage: UNK

REACTIONS (10)
  - Inflammatory bowel disease [Recovered/Resolved]
  - Iron deficiency anaemia [Unknown]
  - Diarrhoea haemorrhagic [Recovering/Resolving]
  - Neutropenia [Recovering/Resolving]
  - Hepatic failure [Recovering/Resolving]
  - Drug ineffective [Unknown]
  - Treatment failure [Recovered/Resolved]
  - Weight decreased [Recovering/Resolving]
  - Haematochezia [Recovering/Resolving]
  - Cytomegalovirus viraemia [Recovering/Resolving]
